FAERS Safety Report 13818712 (Version 6)
Quarter: 2019Q2

REPORT INFORMATION
  Report Type: Report from Study
  Country: DE (occurrence: DE)
  Receive Date: 20170801
  Receipt Date: 20190404
  Transmission Date: 20190711
  Serious: Yes (Death)
  Sender: FDA-Public Use
  Company Number: PHHY2017DE112490

PATIENT
  Age: 46 Year
  Sex: Female
  Weight: 95 kg

DRUGS (9)
  1. ZELBORAF [Suspect]
     Active Substance: VEMURAFENIB
     Indication: MALIGNANT MELANOMA
     Dosage: 620 MG, BID
     Route: 048
     Dates: start: 20170508
  2. DEXAMETHASONE. [Concomitant]
     Active Substance: DEXAMETHASONE
     Indication: MALIGNANT MELANOMA
     Dosage: 4 MG, QD
     Route: 048
     Dates: start: 20170202
  3. ADVANTAN [Concomitant]
     Active Substance: METHYLPREDNISOLONE ACEPONATE
     Indication: PRODUCT USED FOR UNKNOWN INDICATION
     Dosage: 1 OT, BID
     Route: 061
     Dates: start: 20170301, end: 20170330
  4. TAVOR [Concomitant]
     Dosage: 1 MG, UNK
     Route: 048
  5. MIRTAZAPINE. [Concomitant]
     Active Substance: MIRTAZAPINE
     Indication: MALIGNANT MELANOMA
     Dosage: 60 MG, QD
     Route: 048
  6. COTELLIC [Suspect]
     Active Substance: COBIMETINIB
     Indication: MALIGNANT MELANOMA
     Dosage: 60 MG, QD
     Route: 048
     Dates: start: 20170508
  7. TAVOR [Concomitant]
     Indication: MALIGNANT MELANOMA
     Dosage: 1 MG, PRN
     Route: 048
  8. TAFINLAR [Suspect]
     Active Substance: DABRAFENIB MESYLATE
     Indication: METASTATIC MALIGNANT MELANOMA
     Dosage: 150 MG, BID
     Route: 048
     Dates: start: 20170117, end: 20170507
  9. TRAMETINIB [Suspect]
     Active Substance: TRAMETINIB
     Indication: METASTATIC MALIGNANT MELANOMA
     Dosage: 2 MG, QD
     Route: 048
     Dates: start: 20170117, end: 20170507

REACTIONS (2)
  - Erythema nodosum [Unknown]
  - Death [Fatal]

NARRATIVE: CASE EVENT DATE: 20170508
